FAERS Safety Report 19877268 (Version 1)
Quarter: 2021Q3

REPORT INFORMATION
  Report Type: Spontaneous
  Country: US (occurrence: US)
  Receive Date: 20210923
  Receipt Date: 20210923
  Transmission Date: 20211014
  Serious: Yes (Hospitalization)
  Sender: FDA-Public Use
  Company Number: None

PATIENT
  Age: 78 Year
  Sex: Female
  Weight: 52.4 kg

DRUGS (19)
  1. CEFTRIAXONE. [Concomitant]
     Active Substance: CEFTRIAXONE
  2. FAMOTIDINE. [Concomitant]
     Active Substance: FAMOTIDINE
  3. OXYBUTYNIN. [Concomitant]
     Active Substance: OXYBUTYNIN CHLORIDE
  4. ACETAMINOPHEN. [Concomitant]
     Active Substance: ACETAMINOPHEN
  5. DEXAMETHASONE. [Concomitant]
     Active Substance: DEXAMETHASONE
  6. MONUROL [Concomitant]
     Active Substance: FOSFOMYCIN TROMETHAMINE
  7. DIPHENHYDRAMINE. [Concomitant]
     Active Substance: DIPHENHYDRAMINE
  8. METHOTREXATE 2.5MG TABLET (GENERIC) [Suspect]
     Active Substance: METHOTREXATE
     Indication: FOLLICULAR LYMPHOMA
     Route: 058
     Dates: start: 20200822
  9. SOTALOL. [Concomitant]
     Active Substance: SOTALOL
  10. ELIQUIS [Concomitant]
     Active Substance: APIXABAN
  11. FOLIC ACID. [Concomitant]
     Active Substance: FOLIC ACID
  12. LOREZEPAM [Concomitant]
  13. VITAMIN D [Concomitant]
     Active Substance: VITAMIN D NOS
  14. ATORVASTATIN [Concomitant]
     Active Substance: ATORVASTATIN
  15. FISH OIL [Concomitant]
     Active Substance: FISH OIL
  16. HYDROCHLORETHIAZIDE [Concomitant]
  17. PREDNISONE. [Concomitant]
     Active Substance: PREDNISONE
  18. RITUXAN [Concomitant]
     Active Substance: RITUXIMAB
  19. POTASSIUM CITRATE. [Concomitant]
     Active Substance: POTASSIUM CITRATE

REACTIONS (1)
  - Pneumonia [None]
